FAERS Safety Report 5159495-0 (Version None)
Quarter: 2006Q4

REPORT INFORMATION
  Report Type: 
  Country: None (occurrence: None)
  Receive Date: 20061129
  Receipt Date: 20061021
  Transmission Date: 20070319
  Serious: Yes (Hospitalization)
  Sender: FDA-Public Use
  Company Number: FR-BAYER-200611052BFR

PATIENT
  Age: 60 Year
  Sex: Male

DRUGS (5)
  1. LEVITRA [Suspect]
     Indication: UNEVALUABLE EVENT
     Dosage: TOTAL DAILY DOSE: 10 MG  UNIT DOSE: 10 MG
     Route: 048
     Dates: start: 20051201
  2. LEVITRA [Suspect]
     Dosage: TOTAL DAILY DOSE: 10 MG  UNIT DOSE: 10 MG
     Route: 048
     Dates: start: 20060504
  3. CIBADREX [Concomitant]
     Indication: UNEVALUABLE EVENT
     Route: 065
  4. PLAVIX [Concomitant]
     Indication: UNEVALUABLE EVENT
     Route: 065
  5. FENOFIBRATE [Concomitant]
     Indication: UNEVALUABLE EVENT
     Route: 065

REACTIONS (4)
  - CATARACT [None]
  - VISION BLURRED [None]
  - VISUAL DISTURBANCE [None]
  - VISUAL FIELD DEFECT [None]
